FAERS Safety Report 16609044 (Version 1)
Quarter: 2019Q3

REPORT INFORMATION
  Report Type: Spontaneous
  Country: CA (occurrence: CA)
  Receive Date: 20190722
  Receipt Date: 20190722
  Transmission Date: 20191004
  Serious: Yes (Life-Threatening)
  Sender: FDA-Public Use
  Company Number: CA-PFIZER INC-2019310070

PATIENT
  Age: 62 Year
  Sex: Male

DRUGS (13)
  1. DECADRON [Concomitant]
     Active Substance: DEXAMETHASONE
     Dosage: UNK
  2. GLUCOPHAGE [Concomitant]
     Active Substance: METFORMIN HYDROCHLORIDE
     Dosage: UNK
  3. SPIRIVA [Concomitant]
     Active Substance: TIOTROPIUM BROMIDE MONOHYDRATE
     Dosage: UNK
  4. CRESTOR [Concomitant]
     Active Substance: ROSUVASTATIN CALCIUM
     Dosage: UNK
  5. PAXIL [PIROXICAM] [Concomitant]
     Active Substance: PIROXICAM
     Dosage: UNK
  6. COLACE [Concomitant]
     Active Substance: DOCUSATE SODIUM
     Dosage: UNK
  7. NIMESULIDE [Concomitant]
     Active Substance: NIMESULIDE
     Dosage: UNK
  8. SENOKOT [Concomitant]
     Active Substance: SENNOSIDES
     Dosage: UNK
  9. NOMAFEN [Concomitant]
     Dosage: UNK
  10. DILANTIN [Concomitant]
     Active Substance: PHENYTOIN
     Dosage: UNK
  11. FRAGMIN [Suspect]
     Active Substance: DALTEPARIN SODIUM
     Indication: THROMBOSIS PROPHYLAXIS
     Dosage: 0.2 ML, UNK
     Route: 058
  12. FLOMAX [Concomitant]
     Active Substance: TAMSULOSIN HYDROCHLORIDE
     Dosage: UNK
  13. PANTOLOC [PANTOPRAZOLE] [Concomitant]
     Active Substance: PANTOPRAZOLE SODIUM
     Dosage: UNK

REACTIONS (1)
  - Cerebral haemorrhage [Not Recovered/Not Resolved]
